FAERS Safety Report 7822146-8 (Version None)
Quarter: 2011Q4

REPORT INFORMATION
  Report Type: 
  Country: None (occurrence: None)
  Receive Date: 20111018
  Receipt Date: 20110720
  Transmission Date: 20120403
  Serious: No
  Sender: FDA-Public Use
  Company Number: US-ASTRAZENECA-2010SE52113

PATIENT
  Sex: Female
  Weight: 69.4 kg

DRUGS (1)
  1. SYMBICORT [Suspect]
     Indication: ASTHMA
     Dosage: 160/4.5 TWO PUFFS TWICE A DAY
     Route: 055
     Dates: start: 20100101

REACTIONS (6)
  - MYDRIASIS [None]
  - THROAT IRRITATION [None]
  - PRODUCT TASTE ABNORMAL [None]
  - DRUG INEFFECTIVE [None]
  - DRUG EFFECT INCREASED [None]
  - RESPIRATORY TRACT CONGESTION [None]
